FAERS Safety Report 6892779-4 (Version None)
Quarter: 2010Q3

REPORT INFORMATION
  Report Type: 
  Country: None (occurrence: None)
  Receive Date: 20100731
  Receipt Date: 20080916
  Transmission Date: 20110219
  Serious: No
  Sender: FDA-Public Use
  Company Number: US-PFIZER INC-2008078223

PATIENT
  Sex: Male
  Weight: 76.363 kg

DRUGS (4)
  1. NORVASC [Suspect]
     Indication: HYPERTENSION
     Dates: end: 20070201
  2. AMLODIPINE [Suspect]
     Indication: HYPERTENSION
     Dates: start: 20070201, end: 20080201
  3. HYDROCHLOROTHIAZIDE [Concomitant]
  4. LISINOPRIL [Concomitant]

REACTIONS (1)
  - DIZZINESS [None]
